FAERS Safety Report 4323006-X (Version None)
Quarter: 2004Q1

REPORT INFORMATION
  Report Type: 
  Country: None (occurrence: None)
  Receive Date: 20040323
  Receipt Date: 20040323
  Transmission Date: 20041129
  Serious: Yes (Hospitalization)
  Sender: FDA-Public Use
  Company Number: None

PATIENT
  Sex: Female

DRUGS (1)
  1. HYDROCODONE [Suspect]
     Indication: PAIN

REACTIONS (3)
  - ABDOMINAL PAIN [None]
  - SMALL INTESTINAL OBSTRUCTION [None]
  - VOMITING [None]
